FAERS Safety Report 7893909-8 (Version None)
Quarter: 2011Q4

REPORT INFORMATION
  Report Type: 
  Country: None (occurrence: None)
  Receive Date: 20111104
  Receipt Date: 20111101
  Transmission Date: 20120403
  Serious: Yes (Other)
  Sender: FDA-Public Use
  Company Number: US-PFIZER INC-2011241763

PATIENT
  Sex: Female
  Weight: 48 kg

DRUGS (1)
  1. DEPO-PROVERA [Suspect]
     Indication: CONTRACEPTION
     Dosage: EVERY THREE MONTHS
     Dates: start: 20110408, end: 20110101

REACTIONS (5)
  - BIPOLAR I DISORDER [None]
  - PANIC ATTACK [None]
  - LOSS OF CONSCIOUSNESS [None]
  - MAJOR DEPRESSION [None]
  - ANXIETY [None]
